FAERS Safety Report 10188993 (Version 2)
Quarter: 2014Q2

REPORT INFORMATION
  Report Type: Spontaneous
  Country: JP (occurrence: JP)
  Receive Date: 20140522
  Receipt Date: 20140611
  Transmission Date: 20141212
  Serious: No
  Sender: FDA-Public Use
  Company Number: PHHY2014JP061352

PATIENT
  Age: 79 Year
  Sex: Male
  Weight: 72 kg

DRUGS (8)
  1. EXELON PATCH [Suspect]
     Indication: DEMENTIA ALZHEIMER^S TYPE
     Dosage: 4.5MG DAILY (1.9 MG/24HOURS).
     Route: 062
     Dates: start: 20130711
  2. EXELON PATCH [Interacting]
     Dosage: 9 MG DAILY (4.6 MG/24HOURS).
     Route: 062
     Dates: start: 20130816
  3. EXELON PATCH [Interacting]
     Dosage: 13.5MG DAILY (6.9 MG/24HOURS).
     Route: 062
     Dates: start: 20130913
  4. EXELON PATCH [Interacting]
     Dosage: 18 MG DAILY (9.5 MG/24HOURS).
     Route: 062
     Dates: start: 20140207
  5. BAYASPIRIN [Interacting]
     Indication: PROPHYLAXIS
     Dosage: 100 MG, DAILY
     Route: 048
     Dates: start: 20130524
  6. BAYASPIRIN [Interacting]
     Dosage: 50 MG, DAILY
     Route: 048
     Dates: start: 20130817, end: 20130913
  7. PLETAAL [Concomitant]
     Indication: PROPHYLAXIS
     Dosage: 2 DF, DAILY
     Route: 048
     Dates: start: 20130913
  8. HIRUDOID [Concomitant]
     Dosage: UNK UKN, UNK
     Dates: start: 20130816

REACTIONS (2)
  - Haemorrhage subcutaneous [Recovered/Resolved]
  - Drug level increased [Unknown]
